FAERS Safety Report 8429640-X (Version None)
Quarter: 2012Q2

REPORT INFORMATION
  Report Type: 
  Country: None (occurrence: None)
  Receive Date: 20120612
  Receipt Date: 20120531
  Transmission Date: 20120825
  Serious: Yes (Other)
  Sender: FDA-Public Use
  Company Number: US-CELGENEUS-163-20785-12060051

PATIENT
  Sex: Male
  Weight: 61.472 kg

DRUGS (14)
  1. THALOMID [Suspect]
     Dosage: 100 MILLIGRAM
     Route: 048
     Dates: start: 20120201
  2. ZOFRAN [Concomitant]
     Dosage: 8 MILLIGRAM
     Route: 065
  3. THALOMID [Suspect]
     Dosage: 200 MILLIGRAM
     Route: 048
     Dates: start: 20120101
  4. GEMZAR [Concomitant]
     Dosage: 1700 MILLIGRAM
     Route: 065
  5. NEUPOGEN [Concomitant]
     Dosage: 300 MICROGRAM
     Route: 065
  6. CALCIUM +D [Concomitant]
     Dosage: 500 MILLIGRAM
     Route: 065
  7. THALOMID [Suspect]
     Indication: MULTIPLE MYELOMA
     Dosage: 50 MILLIGRAM
     Route: 048
     Dates: start: 20120130
  8. COMPAZINE [Concomitant]
     Dosage: 10 MILLIGRAM
     Route: 065
  9. SENNA LAX [Concomitant]
     Dosage: 8.6 MILLIGRAM
     Route: 065
  10. PROZAC [Concomitant]
     Dosage: 90 MILLIGRAM
     Route: 065
  11. ALLOPURINOL [Concomitant]
     Dosage: 300 MILLIGRAM
     Route: 065
  12. ZANTAC [Concomitant]
     Dosage: 10 MILLIGRAM
     Route: 065
  13. CARBOPLATIN [Concomitant]
     Dosage: 340 MILLIGRAM
     Route: 065
  14. KLOR-CON [Concomitant]
     Dosage: 20 MILLIEQUIVALENTS
     Route: 065

REACTIONS (1)
  - NEOPLASM MALIGNANT [None]
